FAERS Safety Report 6734508-0 (Version None)
Quarter: 2010Q2

REPORT INFORMATION
  Report Type: 
  Country: None (occurrence: None)
  Receive Date: 20100513
  Receipt Date: 20090121
  Transmission Date: 20101027
  Serious: Yes (Other)
  Sender: FDA-Public Use
  Company Number: 2009-190154-NL

PATIENT
  Age: 16 Year
  Sex: Female

DRUGS (3)
  1. ZEMURON [Suspect]
     Indication: ANAESTHESIA PROCEDURE
     Dates: start: 20090101, end: 20090101
  2. ZEMURON [Suspect]
  3. SUCCINYLCHOLINE [Concomitant]

REACTIONS (1)
  - DRUG INEFFECTIVE [None]
